FAERS Safety Report 17777794 (Version 2)
Quarter: 2020Q2

REPORT INFORMATION
  Report Type: Spontaneous
  Country: GB (occurrence: GB)
  Receive Date: 20200513
  Receipt Date: 20200623
  Transmission Date: 20200714
  Serious: Yes (Hospitalization, Disabling)
  Sender: FDA-Public Use
  Company Number: GB-BAUSCH-BL-2020-013587

PATIENT
  Age: 30 Year
  Sex: Male

DRUGS (1)
  1. HYDROCORTISONE. [Suspect]
     Active Substance: HYDROCORTISONE
     Indication: ECZEMA
     Route: 061
     Dates: start: 2015, end: 201910

REACTIONS (10)
  - Steroid withdrawal syndrome [Recovering/Resolving]
  - Chest pain [Recovering/Resolving]
  - Skin hyperpigmentation [Not Recovered/Not Resolved]
  - Hypertension [Recovering/Resolving]
  - Abnormal weight gain [Recovering/Resolving]
  - Vision blurred [Recovering/Resolving]
  - Blood triglycerides increased [Recovering/Resolving]
  - Palpitations [Recovering/Resolving]
  - Fatigue [Not Recovered/Not Resolved]
  - Rash [Not Recovered/Not Resolved]

NARRATIVE: CASE EVENT DATE: 201910
